FAERS Safety Report 9697458 (Version 1)
Quarter: 2013Q4

REPORT INFORMATION
  Report Type: Spontaneous
  Country: US (occurrence: US)
  Receive Date: 20131120
  Receipt Date: 20131120
  Transmission Date: 20140711
  Serious: Yes (Other)
  Sender: FDA-Public Use
  Company Number: PHEH2013US024090

PATIENT
  Sex: 0

DRUGS (2)
  1. TOBI PODHALER [Suspect]
     Indication: CYSTIC FIBROSIS
  2. TOBI PODHALER [Suspect]
     Indication: PSEUDOMONAS INFECTION

REACTIONS (2)
  - Aphonia [Unknown]
  - Device malfunction [Unknown]
